FAERS Safety Report 15594423 (Version 1)
Quarter: 2018Q4

REPORT INFORMATION
  Report Type: Other
  Country: DE (occurrence: DE)
  Receive Date: 20181106
  Receipt Date: 20181106
  Transmission Date: 20190205
  Serious: Yes (Hospitalization)
  Sender: FDA-Public Use
  Company Number: DE-ARALEZ PHARMACEUTICALS R+D INC.-2018-ARA-002764

PATIENT
  Sex: Male

DRUGS (8)
  1. METOPROLOL SUCCINATE. [Suspect]
     Active Substance: METOPROLOL SUCCINATE
     Indication: PRODUCT USED FOR UNKNOWN INDICATION
     Dosage: UNK UNK, BID
     Route: 048
  2. PANTOPRAZOLE                       /01263204/ [Concomitant]
     Active Substance: PANTOPRAZOLE SODIUM
     Indication: PRODUCT USED FOR UNKNOWN INDICATION
  3. LISINOPRIL. [Concomitant]
     Active Substance: LISINOPRIL
     Indication: PRODUCT USED FOR UNKNOWN INDICATION
  4. AMIOHEXAL [Suspect]
     Active Substance: AMIODARONE
     Dosage: 2 DF DAILY
     Dates: start: 2018
  5. AMIOHEXAL [Suspect]
     Active Substance: AMIODARONE
     Indication: HEART RATE INCREASED
     Dosage: 2 DF DAILY
     Dates: start: 2018
  6. XARELTO [Concomitant]
     Active Substance: RIVAROXABAN
     Indication: PRODUCT USED FOR UNKNOWN INDICATION
  7. TORASEMIDE [Concomitant]
     Active Substance: TORSEMIDE
     Indication: PRODUCT USED FOR UNKNOWN INDICATION
  8. METFORMIN [Concomitant]
     Active Substance: METFORMIN HYDROCHLORIDE
     Indication: PRODUCT USED FOR UNKNOWN INDICATION

REACTIONS (5)
  - Lymphatic disorder [Unknown]
  - Sleep apnoea syndrome [Not Recovered/Not Resolved]
  - Skin ulcer [None]
  - Heart rate decreased [Unknown]
  - Extrasystoles [Recovering/Resolving]

NARRATIVE: CASE EVENT DATE: 2000
